FAERS Safety Report 8984417 (Version 3)
Quarter: 2013Q4

REPORT INFORMATION
  Report Type: Spontaneous
  Country: CA (occurrence: CA)
  Receive Date: 20121226
  Receipt Date: 20131218
  Transmission Date: 20140711
  Serious: Yes (Hospitalization)
  Sender: FDA-Public Use
  Company Number: CA-AMGEN-CANSP2012082477

PATIENT
  Age: 85 Year
  Sex: Female
  Weight: 50 kg

DRUGS (1)
  1. PROLIA [Suspect]
     Indication: OSTEOPOROSIS POSTMENOPAUSAL
     Dosage: 60 MG, Q6MO
     Route: 058
     Dates: start: 20120629

REACTIONS (6)
  - Joint effusion [Unknown]
  - Aspiration joint abnormal [Unknown]
  - Tremor [Unknown]
  - Pain in extremity [Unknown]
  - Tendon pain [Unknown]
  - Cataract [Unknown]
